FAERS Safety Report 8520519-1 (Version None)
Quarter: 2012Q3

REPORT INFORMATION
  Report Type: 
  Country: None (occurrence: None)
  Receive Date: 20120719
  Receipt Date: 20120710
  Transmission Date: 20120928
  Serious: Yes (Hospitalization)
  Sender: FDA-Public Use
  Company Number: US-009507513-2012SP029441

PATIENT

DRUGS (3)
  1. SPIRIVA [Concomitant]
     Indication: PRODUCT USED FOR UNKNOWN INDICATION
  2. FORADIL [Concomitant]
     Indication: PRODUCT USED FOR UNKNOWN INDICATION
  3. ASMANEX TWISTHALER [Suspect]
     Dosage: 200 A?G, BID
     Dates: start: 20120401

REACTIONS (5)
  - CREPITATIONS [None]
  - WHEEZING [None]
  - OFF LABEL USE [None]
  - CONDITION AGGRAVATED [None]
  - DRUG DOSE OMISSION [None]
